FAERS Safety Report 5516145-9 (Version None)
Quarter: 2007Q4

REPORT INFORMATION
  Report Type: 
  Country: None (occurrence: None)
  Receive Date: 20071114
  Receipt Date: 20061229
  Transmission Date: 20080405
  Serious: No
  Sender: FDA-Public Use
  Company Number: A0632779A

PATIENT
  Age: 31 Year
  Sex: Female

DRUGS (1)
  1. COMMIT [Suspect]
     Dates: start: 20061225, end: 20061227

REACTIONS (4)
  - DYSPEPSIA [None]
  - HICCUPS [None]
  - NAUSEA [None]
  - PARAESTHESIA ORAL [None]
